FAERS Safety Report 17208911 (Version 2)
Quarter: 2020Q1

REPORT INFORMATION
  Report Type: Spontaneous
  Country: BG (occurrence: BG)
  Receive Date: 20191227
  Receipt Date: 20200129
  Transmission Date: 20200409
  Serious: No
  Sender: FDA-Public Use
  Company Number: BG-009507513-1912BGR008424

PATIENT
  Age: 50 Year
  Sex: Male

DRUGS (1)
  1. BETAMETHASONE DIPROPIONATE/BETAMETHASONE SODIUM PHOSPHATE [Suspect]
     Active Substance: BETAMETHASONE DIPROPIONATE\BETAMETHASONE SODIUM PHOSPHATE
     Dosage: 4 APPLICATIONS
     Route: 061

REACTIONS (1)
  - Treatment failure [Unknown]
